FAERS Safety Report 4782495-7 (Version None)
Quarter: 2005Q3

REPORT INFORMATION
  Report Type: 
  Country: None (occurrence: None)
  Receive Date: 20050929
  Receipt Date: 20050107
  Transmission Date: 20060218
  Serious: No
  Sender: FDA-Public Use
  Company Number: 395841

PATIENT
  Sex: Male

DRUGS (5)
  1. COREG [Suspect]
     Indication: DRUG USE FOR UNKNOWN INDICATION
     Dosage: 3.125MG PER DAY
     Route: 048
  2. COUMADIN [Concomitant]
  3. VITAMINE C [Concomitant]
  4. CALTRATE [Concomitant]
  5. GLUCOSAMINE [Concomitant]

REACTIONS (3)
  - BLOOD PRESSURE DECREASED [None]
  - CARDIAC FLUTTER [None]
  - HEART RATE INCREASED [None]
